FAERS Safety Report 7568980-3 (Version None)
Quarter: 2011Q2

REPORT INFORMATION
  Report Type: 
  Country: None (occurrence: None)
  Receive Date: 20110623
  Receipt Date: 20110615
  Transmission Date: 20111010
  Serious: Yes (Hospitalization)
  Sender: FDA-Public Use
  Company Number: JP-CEPHALON-2011003241

PATIENT
  Age: 42 Year
  Sex: Female
  Weight: 55 kg

DRUGS (8)
  1. METOCLOPRAMIDE HYDROCHLORIDE [Concomitant]
     Dates: start: 20110210, end: 20110322
  2. BENDAMUSTINE HCL [Suspect]
     Indication: B-CELL LYMPHOMA
     Route: 042
     Dates: start: 20110209, end: 20110210
  3. BENDAMUSTINE HCL [Suspect]
     Route: 042
     Dates: start: 20110309, end: 20110310
  4. LANSOPRAZOLE [Concomitant]
     Dates: start: 20110209, end: 20110310
  5. PROCHLORPERAZINE MALEATE [Concomitant]
  6. DOMPERIDONE [Concomitant]
     Dates: start: 20110218, end: 20110429
  7. FLURBIPROFEN [Concomitant]
     Dates: start: 20110210, end: 20110322
  8. MORPHINE HCL ELIXIR [Concomitant]
     Dates: start: 20110212, end: 20110427

REACTIONS (2)
  - HEPATIC FUNCTION ABNORMAL [None]
  - PANCYTOPENIA [None]
